FAERS Safety Report 9492250 (Version 2)
Quarter: 2013Q3

REPORT INFORMATION
  Report Type: Report from Study
  Country: CH (occurrence: CH)
  Receive Date: 20130830
  Receipt Date: 20130830
  Transmission Date: 20140515
  Serious: Yes (Death, Other)
  Sender: FDA-Public Use
  Company Number: CH-TEVA-2011005269

PATIENT
  Age: 87 Year
  Sex: Female

DRUGS (7)
  1. RIBOMUSTIN POWDER [Suspect]
     Indication: B-CELL LYMPHOMA
     Dosage: 70 MG/M2 DAILY; DAY 1 AND 2 OF EACH CYCLE
     Route: 042
     Dates: start: 20110907, end: 20110908
  2. RIBOMUSTIN POWDER [Suspect]
     Indication: NON-HODGKIN^S LYMPHOMA
  3. RITUXIMAB [Suspect]
     Indication: B-CELL LYMPHOMA
     Dosage: 375 MG/M2 DAILY; DAY 1 EACH CYCLE
     Route: 042
     Dates: start: 20110907, end: 20110907
  4. REVLIMID [Suspect]
     Indication: B-CELL LYMPHOMA
     Dosage: DAILY FOR 21 DAYS ON 28-DAY CYCLE
     Route: 048
     Dates: start: 20110907, end: 20110927
  5. PANTOZAL [Concomitant]
     Dates: start: 20110907, end: 20111002
  6. FERRUM HAUSMANN [Concomitant]
     Dates: end: 20111002
  7. DAFALGAN [Concomitant]
     Dates: end: 20111002

REACTIONS (2)
  - Death [Fatal]
  - Fatigue [Unknown]
